FAERS Safety Report 16261630 (Version 8)
Quarter: 2020Q1

REPORT INFORMATION
  Report Type: Spontaneous
  Country: US (occurrence: US)
  Receive Date: 20190501
  Receipt Date: 20200221
  Transmission Date: 20200409
  Serious: Yes (Other)
  Sender: FDA-Public Use
  Company Number: US-PFIZER INC-2019102720

PATIENT
  Age: 52 Year
  Sex: Male
  Weight: 63 kg

DRUGS (2)
  1. LYRICA [Suspect]
     Active Substance: PREGABALIN
     Dosage: 100 MG, SIX TIMES DAILY
     Route: 048
     Dates: start: 2019, end: 2019
  2. LYRICA [Suspect]
     Active Substance: PREGABALIN
     Indication: FACIAL PAIN
     Dosage: 100 MG, FOUR TIMES DAILY
     Route: 048
     Dates: start: 20190226, end: 2019

REACTIONS (3)
  - Malaise [Unknown]
  - Pain [Unknown]
  - Drug dependence [Unknown]

NARRATIVE: CASE EVENT DATE: 2019
